FAERS Safety Report 9764731 (Version 1)
Quarter: 2013Q4

REPORT INFORMATION
  Report Type: Spontaneous
  Country: US (occurrence: None)
  Receive Date: 20131213
  Receipt Date: 20131213
  Transmission Date: 20140711
  Serious: Yes (Other)
  Sender: FDA-Public Use
  Company Number: 2013SA024604

PATIENT
  Sex: Male

DRUGS (1)
  1. CAPZASIN [Suspect]
     Indication: MYALGIA
     Route: 061

REACTIONS (5)
  - Thermal burn [None]
  - Pain [None]
  - Chest pain [None]
  - Throat tightness [None]
  - Application site hypoaesthesia [None]
